FAERS Safety Report 4766427-3 (Version None)
Quarter: 2005Q3

REPORT INFORMATION
  Report Type: 
  Country: None (occurrence: None)
  Receive Date: 20050912
  Receipt Date: 20050831
  Transmission Date: 20060218
  Serious: Yes (Death, Hospitalization, Other)
  Sender: FDA-Public Use
  Company Number: FR-BRISTOL-MYERS SQUIBB COMPANY-13098843

PATIENT
  Age: 60 Year
  Sex: Female
  Weight: 60 kg

DRUGS (12)
  1. AMIKLIN POWDER [Suspect]
     Indication: PYELONEPHRITIS ACUTE
     Dates: start: 20050113, end: 20050114
  2. AMIKLIN POWDER [Suspect]
     Indication: PYONEPHROSIS
     Dates: start: 20050113, end: 20050114
  3. TOPALGIC [Suspect]
     Dates: start: 20050113, end: 20050114
  4. PROFENID [Suspect]
     Indication: BACK PAIN
     Dates: start: 20050113, end: 20050114
  5. PROFENID [Suspect]
     Indication: BONE PAIN
     Dates: start: 20050113, end: 20050114
  6. OFLOCET [Suspect]
     Indication: PYELONEPHRITIS ACUTE
     Dates: start: 20050113, end: 20050114
  7. OFLOCET [Suspect]
     Indication: PYONEPHROSIS
     Dates: start: 20050113, end: 20050114
  8. SPASFON [Suspect]
     Indication: ABDOMINAL PAIN
     Dates: start: 20050113, end: 20050114
  9. FOSAMAX [Suspect]
     Indication: OSTEOPOROSIS
     Dates: end: 20050114
  10. IDEOS [Concomitant]
  11. ART 50 [Concomitant]
  12. BROMAZEPAM [Concomitant]

REACTIONS (6)
  - DEPRESSED LEVEL OF CONSCIOUSNESS [None]
  - HYPOTENSION [None]
  - LUNG DISORDER [None]
  - SEPSIS [None]
  - SEPTIC SHOCK [None]
  - URINARY TRACT INFECTION [None]
